FAERS Safety Report 23616154 (Version 1)
Quarter: 2024Q1

REPORT INFORMATION
  Report Type: Spontaneous
  Country: DE (occurrence: DE)
  Receive Date: 20240311
  Receipt Date: 20240311
  Transmission Date: 20240410
  Serious: Yes (Other)
  Sender: FDA-Public Use
  Company Number: None

PATIENT
  Age: 38 Year
  Sex: Female
  Weight: 50 kg

DRUGS (1)
  1. SERTRALINE [Suspect]
     Active Substance: SERTRALINE HYDROCHLORIDE
     Indication: Depression
     Dosage: 100MG
     Dates: start: 20200401, end: 20220301

REACTIONS (5)
  - Vomiting [Unknown]
  - Breast cancer [Recovered/Resolved]
  - Nausea [Unknown]
  - Hyperhidrosis [Unknown]
  - Dizziness [Unknown]

NARRATIVE: CASE EVENT DATE: 20200101
